FAERS Safety Report 4917433-7 (Version None)
Quarter: 2006Q1

REPORT INFORMATION
  Report Type: 
  Country: None (occurrence: None)
  Receive Date: 20060221
  Receipt Date: 20060213
  Transmission Date: 20060701
  Serious: Yes (Death)
  Sender: FDA-Public Use
  Company Number: US-MERCK-0602USA04320

PATIENT
  Age: 59 Year
  Sex: Male
  Weight: 109 kg

DRUGS (2)
  1. VIOXX [Suspect]
     Indication: ARTHRITIS
     Route: 048
     Dates: start: 20010901, end: 20031011
  2. MOTRIN [Concomitant]
     Route: 048

REACTIONS (2)
  - CARDIAC FAILURE [None]
  - RENAL FAILURE [None]
